FAERS Safety Report 20069159 (Version 5)
Quarter: 2024Q1

REPORT INFORMATION
  Report Type: Report from Study
  Country: US (occurrence: US)
  Receive Date: 20211115
  Receipt Date: 20240112
  Transmission Date: 20240409
  Serious: Yes (Other)
  Sender: FDA-Public Use
  Company Number: US-TAKEDA-2021TUS050745

PATIENT
  Sex: Male

DRUGS (2)
  1. HUMAN IMMUNOGLOBULIN G [Suspect]
     Active Substance: HUMAN IMMUNOGLOBULIN G
     Indication: Primary immunodeficiency syndrome
     Dosage: UNK
     Route: 065
  2. PNEUMOVAX 23 [Suspect]
     Active Substance: PNEUMOCOCCAL VACCINE, POLYVALENT 23
     Indication: Product used for unknown indication
     Dosage: UNK
     Route: 065

REACTIONS (10)
  - Renal impairment [Unknown]
  - Irritability [Unknown]
  - Gastroenteritis viral [Unknown]
  - Vaccination site mass [Recovered/Resolved]
  - Vaccination site swelling [Recovered/Resolved]
  - Injection site swelling [Unknown]
  - Immunisation reaction [Recovered/Resolved]
  - Fatigue [Unknown]
  - Infusion site discharge [Recovering/Resolving]
  - Product use complaint [Unknown]
